FAERS Safety Report 4982454-5 (Version None)
Quarter: 2006Q2

REPORT INFORMATION
  Report Type: 
  Country: None (occurrence: None)
  Receive Date: 20060419
  Receipt Date: 20060407
  Transmission Date: 20061013
  Serious: Yes (Other)
  Sender: FDA-Public Use
  Company Number: 2006049297

PATIENT
  Sex: Female

DRUGS (2)
  1. ZYVOX [Suspect]
     Indication: ILL-DEFINED DISORDER
     Dosage: (600 MG)
     Dates: start: 20060329, end: 20060403
  2. AMIODARONE HCL [Suspect]
     Indication: ILL-DEFINED DISORDER
     Dates: end: 20060407

REACTIONS (10)
  - DYSPHAGIA [None]
  - FEELING ABNORMAL [None]
  - HYPOAESTHESIA [None]
  - HYPOAESTHESIA ORAL [None]
  - OEDEMA PERIPHERAL [None]
  - SALIVARY GLAND ENLARGEMENT [None]
  - SENSORY DISTURBANCE [None]
  - SPEECH DISORDER [None]
  - SWOLLEN TONGUE [None]
  - VISION BLURRED [None]
